FAERS Safety Report 7413520-2 (Version None)
Quarter: 2011Q2

REPORT INFORMATION
  Report Type: 
  Country: None (occurrence: None)
  Receive Date: 20110413
  Receipt Date: 20110404
  Transmission Date: 20111010
  Serious: Yes (Hospitalization)
  Sender: FDA-Public Use
  Company Number: US-CEPHALON-2011001614

PATIENT
  Sex: Female
  Weight: 86 kg

DRUGS (7)
  1. PREDNISONE [Concomitant]
  2. NUVIGIL [Suspect]
     Indication: SYSTEMIC LUPUS ERYTHEMATOSUS
     Route: 048
     Dates: start: 20110301, end: 20110402
  3. PROZAC [Concomitant]
  4. NUVIGIL [Suspect]
     Route: 048
     Dates: start: 20110402, end: 20110401
  5. PILOCARPINE [Concomitant]
  6. LEVOTHYROXINE [Concomitant]
  7. MOBIC [Concomitant]

REACTIONS (5)
  - VISION BLURRED [None]
  - PHOTOPHOBIA [None]
  - HEADACHE [None]
  - MENINGITIS [None]
  - NAUSEA [None]
